FAERS Safety Report 10349180 (Version 3)
Quarter: 2015Q1

REPORT INFORMATION
  Report Type: Spontaneous
  Country: US (occurrence: US)
  Receive Date: 20140730
  Receipt Date: 20140730
  Transmission Date: 20150720
  Serious: Yes (Other)
  Sender: FDA-Public Use
  Company Number: US-AMGEN-USASP2014047675

PATIENT
  Age: 68 Year
  Sex: Female
  Weight: 97.96 kg

DRUGS (7)
  1. TRIAMTERENE AND HYDROCHLOROTHIAZIDE [Concomitant]
     Active Substance: HYDROCHLOROTHIAZIDE\TRIAMTERENE
     Dosage: (37.5-25) MG, QD
     Route: 048
  2. ENBREL [Suspect]
     Active Substance: ETANERCEPT
     Indication: RHEUMATOID ARTHRITIS
     Dosage: UNK
     Route: 065
     Dates: start: 200908
  3. TRAMADOL HCL [Concomitant]
     Active Substance: TRAMADOL HYDROCHLORIDE
     Dosage: 50 MG, AS NECESSARY (FOUR TIMES DAILY)
     Route: 048
  4. SIMVASTATIN. [Concomitant]
     Active Substance: SIMVASTATIN
     Indication: BLOOD CHOLESTEROL
     Dosage: UNK, ONE TABLET EACH EVENING
  5. METHOTREXATE [Concomitant]
     Active Substance: METHOTREXATE
     Dosage: 2.5 MG, QWK
     Route: 048
  6. FOLIC ACID. [Concomitant]
     Active Substance: FOLIC ACID
     Dosage: 1 MG, QD
     Route: 048
  7. VITAMIN D                          /00107901/ [Concomitant]
     Active Substance: ERGOCALCIFEROL
     Dosage: 1000 UNIT, QD
     Route: 048

REACTIONS (17)
  - Renal failure [Unknown]
  - Osteoarthritis [Unknown]
  - Pruritus [Recovered/Resolved]
  - Swelling [Recovered/Resolved]
  - Impaired healing [Recovering/Resolving]
  - Activities of daily living impaired [Unknown]
  - Erythema [Recovered/Resolved]
  - Red blood cell sedimentation rate increased [Unknown]
  - Skin ulcer [Recovering/Resolving]
  - Insomnia [Unknown]
  - Osteopenia [Unknown]
  - Anxiety [Unknown]
  - Nervousness [Unknown]
  - Pain [Unknown]
  - Rheumatoid arthritis [Unknown]
  - Mobility decreased [Unknown]
  - Wound [Recovered/Resolved]

NARRATIVE: CASE EVENT DATE: 201210
